FAERS Safety Report 18597065 (Version 6)
Quarter: 2021Q1

REPORT INFORMATION
  Report Type: Report from Study
  Country: FR (occurrence: FR)
  Receive Date: 20201209
  Receipt Date: 20210308
  Transmission Date: 20210419
  Serious: Yes (Hospitalization)
  Sender: FDA-Public Use
  Company Number: FR-JNJFOC-20201029723

PATIENT
  Age: 54 Year
  Sex: Male
  Weight: 82 kg

DRUGS (10)
  1. SPRAVATO [Suspect]
     Active Substance: ESKETAMINE
     Dates: start: 20201211
  2. SELEGILINE [Concomitant]
     Active Substance: SELEGILINE
     Indication: DEPRESSION
     Dates: start: 20201022
  3. PHENELZINE [Concomitant]
     Active Substance: PHENELZINE
     Indication: DEPRESSION
     Dates: start: 20200323, end: 20200917
  4. SPRAVATO [Suspect]
     Active Substance: ESKETAMINE
     Dates: start: 20201207
  5. LITHIUM. [Concomitant]
     Active Substance: LITHIUM
     Dates: start: 20200323
  6. SPRAVATO [Suspect]
     Active Substance: ESKETAMINE
     Dates: start: 20200504
  7. SPRAVATO [Suspect]
     Active Substance: ESKETAMINE
     Dates: start: 20210208
  8. PREGABALINE [Concomitant]
     Active Substance: PREGABALIN
     Dates: start: 20180911
  9. SPRAVATO [Suspect]
     Active Substance: ESKETAMINE
     Indication: DEPRESSION
  10. SPRAVATO [Suspect]
     Active Substance: ESKETAMINE
     Dates: start: 20200904

REACTIONS (7)
  - Euphoric mood [Recovered/Resolved]
  - Confusional state [Recovered/Resolved]
  - Off label use [Unknown]
  - Product use issue [Unknown]
  - Drug ineffective [Recovered/Resolved]
  - Hyposomnia [Unknown]
  - Depression [Unknown]

NARRATIVE: CASE EVENT DATE: 20200904
